FAERS Safety Report 5451838-3 (Version None)
Quarter: 2007Q3

REPORT INFORMATION
  Report Type: 
  Country: None (occurrence: None)
  Receive Date: 20070912
  Receipt Date: 20070823
  Transmission Date: 20080115
  Serious: Yes (Other)
  Sender: FDA-Public Use
  Company Number: ENTC2007-0246

PATIENT
  Age: 67 Year
  Sex: Male

DRUGS (4)
  1. STALEVO 100 [Suspect]
     Indication: PARKINSON'S DISEASE
     Dosage: 150/37.5-5/200 X 5; 100/25/200 X 5
     Route: 048
     Dates: start: 20070611, end: 20070711
  2. STALEVO 100 [Suspect]
     Indication: PARKINSON'S DISEASE
     Dosage: 150/37.5-5/200 X 5; 100/25/200 X 5
     Route: 048
     Dates: start: 20070712, end: 20070806
  3. STALEVO 100 [Suspect]
     Indication: PARKINSON'S DISEASE
     Dosage: 150/37.5-5/200 X 5; 100/25/200 X 5
     Route: 048
     Dates: start: 20070807
  4. ZIAC [Concomitant]

REACTIONS (5)
  - ENURESIS [None]
  - HYPOTENSION [None]
  - MUSCULOSKELETAL STIFFNESS [None]
  - SALIVARY HYPERSECRETION [None]
  - SOMNOLENCE [None]
